FAERS Safety Report 11311168 (Version 3)
Quarter: 2015Q3

REPORT INFORMATION
  Report Type: Spontaneous
  Country: US (occurrence: US)
  Receive Date: 20150727
  Receipt Date: 20150810
  Transmission Date: 20151125
  Serious: No
  Sender: FDA-Public Use
  Company Number: US-AMGEN-USASP2015075270

PATIENT
  Age: 62 Year
  Sex: Male
  Weight: 86.17 kg

DRUGS (1)
  1. ENBREL [Suspect]
     Active Substance: ETANERCEPT
     Indication: RHEUMATOID ARTHRITIS
     Dosage: 50 MG, WKLY
     Route: 058
     Dates: start: 2004

REACTIONS (12)
  - Myalgia [Unknown]
  - Headache [Unknown]
  - Joint stiffness [Unknown]
  - Influenza [Unknown]
  - Arthritis [Not Recovered/Not Resolved]
  - Joint swelling [Unknown]
  - Malaise [Unknown]
  - Peripheral swelling [Unknown]
  - Rheumatoid nodule [Not Recovered/Not Resolved]
  - Arthralgia [Unknown]
  - Feeling hot [Unknown]
  - Pain in extremity [Unknown]

NARRATIVE: CASE EVENT DATE: 201506
